FAERS Safety Report 18841716 (Version 1)
Quarter: 2021Q1

REPORT INFORMATION
  Report Type: Spontaneous
  Country: US (occurrence: US)
  Receive Date: 20210204
  Receipt Date: 20210204
  Transmission Date: 20210419
  Serious: Yes (Other)
  Sender: FDA-Public Use
  Company Number: US-SA-2021SA033300

PATIENT
  Sex: Female

DRUGS (1)
  1. DUPIXENT [Suspect]
     Active Substance: DUPILUMAB
     Indication: ASTHMA
     Dosage: 300 ML, QOW
     Route: 058
     Dates: start: 20201205

REACTIONS (3)
  - Contusion [Not Recovered/Not Resolved]
  - Hallucination [Not Recovered/Not Resolved]
  - Psychotic behaviour [Not Recovered/Not Resolved]
